FAERS Safety Report 5145634-4 (Version None)
Quarter: 2006Q4

REPORT INFORMATION
  Report Type: 
  Country: None (occurrence: None)
  Receive Date: 20061102
  Receipt Date: 20061023
  Transmission Date: 20070319
  Serious: Yes (Death, Life-Threatening, Hospitalization)
  Sender: FDA-Public Use
  Company Number: 2006EU002116

PATIENT
  Age: 63 Year
  Sex: Male

DRUGS (11)
  1. FK506(TACROLIMUS CAPSULES) [Suspect]
     Indication: LIVER TRANSPLANT
     Dosage: 4 MG, UID/QD, IV NOS; 0.5 MG, UID/QD, ORAL
     Route: 042
     Dates: start: 20050502, end: 20050502
  2. FK506(TACROLIMUS CAPSULES) [Suspect]
     Indication: LIVER TRANSPLANT
     Dosage: 4 MG, UID/QD, IV NOS; 0.5 MG, UID/QD, ORAL
     Route: 042
     Dates: start: 20050503, end: 20060922
  3. METHYLPREDNISOLONE [Suspect]
     Indication: LIVER TRANSPLANT
     Dosage: 50 MG, UID/QD
     Dates: start: 20050502, end: 20050507
  4. PREDNISONE TAB [Suspect]
     Indication: LIVER TRANSPLANT
     Dosage: 5 MG, UID/QD
     Dates: start: 20050508, end: 20050806
  5. PIPERLINE (PIPERACILLIN SODIUM) [Concomitant]
  6. HEPARIN [Concomitant]
  7. SUFENTA [Concomitant]
  8. HYPNOVEL (MIDAZOLAM HYDROCHLORIDE) [Concomitant]
  9. TRASYLOL [Concomitant]
  10. NORADRENALINE (NOREPINEPHRINE) [Concomitant]
  11. OMEPRAZOLE [Concomitant]

REACTIONS (2)
  - INFECTION IN AN IMMUNOCOMPROMISED HOST [None]
  - SEPTIC SHOCK [None]
